FAERS Safety Report 23591969 (Version 1)
Quarter: 2024Q1

REPORT INFORMATION
  Report Type: Spontaneous
  Country: US (occurrence: None)
  Receive Date: 20240304
  Receipt Date: 20240304
  Transmission Date: 20240410
  Serious: Yes (Hospitalization)
  Sender: FDA-Public Use
  Company Number: None

PATIENT
  Age: 66 Year
  Sex: Female
  Weight: 60 kg

DRUGS (6)
  1. GEMTUZUMAB OZOGAMICIN [Suspect]
     Active Substance: GEMTUZUMAB OZOGAMICIN
     Indication: Acute myeloid leukaemia recurrent
     Dosage: OTHER FREQUENCY : DAYS1,4, + 7;?
     Route: 042
     Dates: start: 20240214, end: 20240220
  2. TAGRAXOFUSP-ERZS [Concomitant]
     Active Substance: TAGRAXOFUSP-ERZS
     Dosage: OTHER FREQUENCY : DAYS10,11.12;?
     Route: 042
     Dates: start: 20240223, end: 20240225
  3. VALACYCLOVIR [Concomitant]
  4. VORICONAZOLE [Concomitant]
  5. FUROSEMIDE [Concomitant]
  6. MOXIFLOXACIN [Concomitant]

REACTIONS (4)
  - Febrile neutropenia [None]
  - Thrombocytopenia [None]
  - Presyncope [None]
  - Pancytopenia [None]

NARRATIVE: CASE EVENT DATE: 20240227
